FAERS Safety Report 7529532-4 (Version None)
Quarter: 2011Q2

REPORT INFORMATION
  Report Type: 
  Country: None (occurrence: None)
  Receive Date: 20110607
  Receipt Date: 20050701
  Transmission Date: 20111010
  Serious: Yes (Other)
  Sender: FDA-Public Use
  Company Number: PHFR2005GB01652

PATIENT
  Sex: Female

DRUGS (1)
  1. CLOZARIL [Suspect]
     Indication: SCHIZOPHRENIA
     Dates: start: 20030207

REACTIONS (7)
  - HEPATITIS C VIRUS TEST POSITIVE [None]
  - TACHYCARDIA [None]
  - DRUG ABUSE [None]
  - PSYCHOTIC DISORDER [None]
  - SINUS TACHYCARDIA [None]
  - CONDITION AGGRAVATED [None]
  - LIVER FUNCTION TEST ABNORMAL [None]
